FAERS Safety Report 9057977 (Version 1)
Quarter: 2013Q1

REPORT INFORMATION
  Report Type: Spontaneous
  Country: CA (occurrence: CA)
  Receive Date: 20130211
  Receipt Date: 20130211
  Transmission Date: 20140127
  Serious: Yes (Other)
  Sender: FDA-Public Use
  Company Number: CA-AMGEN-CANSP2013007467

PATIENT
  Age: 52 Year
  Sex: Female

DRUGS (7)
  1. ENBREL [Suspect]
     Indication: RHEUMATOID ARTHRITIS
     Dosage: 50 MG, UNK
     Route: 058
     Dates: start: 20121220
  2. CYMBALTA [Concomitant]
     Dosage: UNK UNK, QD
  3. RABEPRAZOLE [Concomitant]
     Dosage: 2 TABS OD
  4. ROCALTROL [Concomitant]
     Dosage: 0.5 MG, QD
  5. SYNTHROID [Concomitant]
     Dosage: 0.125 MG, QD
  6. LEFLUNOMIDE [Concomitant]
     Dosage: 20 MG, QD
  7. CALCIUM CITRATE WITH VITAMIN D [Concomitant]
     Dosage: 3000 MG, QD

REACTIONS (3)
  - Injection site reaction [Not Recovered/Not Resolved]
  - Injection site erythema [Not Recovered/Not Resolved]
  - Injection site induration [Not Recovered/Not Resolved]
